FAERS Safety Report 7423024-9 (Version None)
Quarter: 2011Q2

REPORT INFORMATION
  Report Type: 
  Country: None (occurrence: None)
  Receive Date: 20110419
  Receipt Date: 20110407
  Transmission Date: 20111010
  Serious: Yes (Other)
  Sender: FDA-Public Use
  Company Number: GB-PFIZER INC-2011077664

PATIENT
  Age: 57 Year
  Sex: Male

DRUGS (8)
  1. OMEPRAZOLE [Concomitant]
     Dosage: 20 MG, UNK
     Dates: start: 20110207, end: 20110223
  2. AMLODIPINE [Concomitant]
     Dosage: 5 MG, UNK
     Dates: start: 20110125, end: 20110223
  3. GEMTUZUMAB OZOGAMICIN [Suspect]
     Dosage: 3 MG, UNK
  4. EVEROLIMUS [Suspect]
     Dosage: UNK
     Dates: start: 20110206
  5. RAMIPRIL [Concomitant]
     Dosage: 5 MG, UNK
     Dates: start: 20110125, end: 20110223
  6. METFORMIN [Concomitant]
     Dosage: 500 MG, UNK
     Dates: start: 20110125, end: 20110224
  7. LENOGRASTIM [Concomitant]
     Dosage: 20 MG, UNK
     Dates: start: 20110207, end: 20110211
  8. MIRTAZAPINE [Concomitant]
     Dosage: 15 MG, UNK
     Dates: start: 20110210

REACTIONS (1)
  - RENAL FAILURE [None]
